FAERS Safety Report 23821627 (Version 1)
Quarter: 2024Q2

REPORT INFORMATION
  Report Type: Spontaneous
  Country: US (occurrence: None)
  Receive Date: 20240504
  Receipt Date: 20240504
  Transmission Date: 20240716
  Serious: Yes (Hospitalization)
  Sender: FDA-Public Use
  Company Number: None

PATIENT
  Age: 79 Year
  Sex: Male
  Weight: 106 kg

DRUGS (1)
  1. IRON DEXTRAN [Suspect]
     Active Substance: IRON DEXTRAN
     Indication: Blood iron decreased
     Dosage: 25 MG ONCE IV
     Route: 042
     Dates: start: 20221120, end: 20221120

REACTIONS (3)
  - Dizziness [None]
  - Oedema peripheral [None]
  - Myalgia [None]

NARRATIVE: CASE EVENT DATE: 20221120
